FAERS Safety Report 10898847 (Version 3)
Quarter: 2015Q2

REPORT INFORMATION
  Report Type: Report from Study
  Country: BE (occurrence: BE)
  Receive Date: 20150309
  Receipt Date: 20150409
  Transmission Date: 20150821
  Serious: Yes (Disabling, Other)
  Sender: FDA-Public Use
  Company Number: PHHO2015BE003002

PATIENT
  Age: 42 Year
  Sex: Female
  Weight: 108 kg

DRUGS (3)
  1. DICLOFENAC [Concomitant]
     Active Substance: DICLOFENAC
     Indication: ANKYLOSING SPONDYLITIS
     Dosage: 75 MG, QD
     Route: 048
     Dates: start: 20140506, end: 20150223
  2. AIN457 [Suspect]
     Active Substance: SECUKINUMAB
     Indication: ANKYLOSING SPONDYLITIS
     Dosage: 300 MG, UNK
     Route: 058
     Dates: start: 20140717, end: 20150226
  3. MEDIOL [Suspect]
     Active Substance: METHYLESTRADIOL\NORMETHANDRONE

REACTIONS (2)
  - Vogt-Koyanagi-Harada syndrome [Recovering/Resolving]
  - Loss of consciousness [Recovered/Resolved]

NARRATIVE: CASE EVENT DATE: 20150221
